FAERS Safety Report 9817323 (Version 5)
Quarter: 2014Q3

REPORT INFORMATION
  Report Type: Spontaneous
  Country: US (occurrence: US)
  Receive Date: 20140115
  Receipt Date: 20140902
  Transmission Date: 20150326
  Serious: Yes (Hospitalization, Other)
  Sender: FDA-Public Use
  Company Number: US-AMGEN-USASP2013035600

PATIENT
  Age: 32 Year
  Sex: Female
  Weight: 65.76 kg

DRUGS (3)
  1. CONCEPT DHA [Concomitant]
     Active Substance: ASCORBIC ACID\BIOTIN\CALCIUM PANTOTHENATE\CUPRIC SULFATE\CYANOCOBALAMIN\FERROUS FUMARATE\FOLIC ACID\IRON\MAGNESIUM SULFATE\NIACIN\OMEGA-3-ACID ETHYL ESTERS\PYRIDOXINE HYDROCHLORIDE\RIBOFLAVIN\THIAMINE MONONITRATE\ZINC SULFATE
     Indication: PREGNANCY
     Dosage: UNK UNK, QD
     Route: 048
     Dates: start: 201304
  2. NPLATE [Suspect]
     Active Substance: ROMIPLOSTIM
     Indication: IMMUNE THROMBOCYTOPENIC PURPURA
     Dosage: 1 MUG/KG, QWK
     Route: 058
     Dates: start: 20130405, end: 20130426
  3. HUMALOG [Concomitant]
     Active Substance: INSULIN LISPRO
     Indication: TYPE 1 DIABETES MELLITUS
     Dosage: 1 MUG, UNK
     Route: 050
     Dates: start: 1996

REACTIONS (2)
  - Caesarean section [Unknown]
  - Exposure to communicable disease [Unknown]

NARRATIVE: CASE EVENT DATE: 20140102
